FAERS Safety Report 5014273-8 (Version None)
Quarter: 2006Q2

REPORT INFORMATION
  Report Type: 
  Country: None (occurrence: None)
  Receive Date: 20060414
  Receipt Date: 20051215
  Transmission Date: 20061013
  Serious: No
  Sender: FDA-Public Use
  Company Number: 2005SP004321

PATIENT
  Age: 65 Year
  Sex: Female
  Weight: 68.0396 kg

DRUGS (4)
  1. LUNESTA [Suspect]
     Dosage: 3 MG HS ORAL
     Route: 048
     Dates: start: 20050901
  2. CELEBREX [Concomitant]
  3. PREMARIN [Concomitant]
  4. VITAMINS [Concomitant]

REACTIONS (1)
  - DYSGEUSIA [None]
